FAERS Safety Report 14987652 (Version 4)
Quarter: 2019Q1

REPORT INFORMATION
  Report Type: Report from Study
  Country: US (occurrence: US)
  Receive Date: 20180608
  Receipt Date: 20190212
  Transmission Date: 20190417
  Serious: Yes (Life-Threatening)
  Sender: FDA-Public Use
  Company Number: PHHO2018US006981

PATIENT
  Sex: Female
  Weight: 90 kg

DRUGS (3)
  1. COMPARATOR TRASTUZUMAB [Suspect]
     Active Substance: TRASTUZUMAB
     Indication: BREAST CANCER
     Dosage: 4 MG/KG, ON DAY 1, WEEK 1 ONLY
     Route: 042
     Dates: start: 200901, end: 20090407
  2. TYVERB [Suspect]
     Active Substance: LAPATINIB
     Indication: BREAST CANCER
     Dosage: 1500 MG, QD, CONTINUSLY
     Route: 048
     Dates: start: 200905, end: 20100119
  3. COMPARATOR DOCETAXEL [Suspect]
     Active Substance: DOCETAXEL
     Indication: BREAST CANCER
     Dosage: 75 MG/M2, Q 21 DAYS  FOR 4 DOSES
     Route: 042
     Dates: start: 200901, end: 20090407

REACTIONS (2)
  - Second primary malignancy [Not Recovered/Not Resolved]
  - Small cell lung cancer [Not Recovered/Not Resolved]

NARRATIVE: CASE EVENT DATE: 20160923
